FAERS Safety Report 4591673-1 (Version None)
Quarter: 2005Q1

REPORT INFORMATION
  Report Type: 
  Country: None (occurrence: None)
  Receive Date: 20050218
  Receipt Date: 20050208
  Transmission Date: 20050727
  Serious: Yes (Death)
  Sender: FDA-Public Use
  Company Number: 2005UW00843

PATIENT
  Age: 40 Year
  Sex: Female
  Weight: 157.8518 kg

DRUGS (2)
  1. SEROQUEL [Suspect]
  2. PROTONIX [Concomitant]

REACTIONS (6)
  - ARRHYTHMIA [None]
  - DRUG SCREEN POSITIVE [None]
  - HEPATIC ATROPHY [None]
  - HEPATIC STEATOSIS [None]
  - PICKWICKIAN SYNDROME [None]
  - PULMONARY CONGESTION [None]
